FAERS Safety Report 11900998 (Version 1)
Quarter: 2016Q1

REPORT INFORMATION
  Report Type: Report from Study
  Country: US (occurrence: US)
  Receive Date: 20160108
  Receipt Date: 20160108
  Transmission Date: 20160526
  Serious: No
  Sender: FDA-Public Use
  Company Number: US-ABBVIE-15P-163-1457807-00

PATIENT
  Age: 32 Year
  Sex: Female

DRUGS (3)
  1. RIBASPHERE [Concomitant]
     Active Substance: RIBAVIRIN
     Indication: HEPATITIS C
     Route: 048
  2. VIEKIRA PAK [Suspect]
     Active Substance: DASABUVIR\OMBITASVIR\PARITAPREVIR\RITONAVIR
     Indication: HEPATITIS C
     Dosage: WEEKLY PACK 28^S, IN THE MORNING AND EVENING
     Route: 048
     Dates: start: 20150801
  3. MULTIVITAMIN [Concomitant]
     Active Substance: VITAMINS
     Indication: PRODUCT USED FOR UNKNOWN INDICATION
     Route: 065

REACTIONS (5)
  - Feeling hot [Recovered/Resolved]
  - Vomiting [Recovered/Resolved]
  - Crying [Unknown]
  - Nausea [Unknown]
  - Mood altered [Unknown]

NARRATIVE: CASE EVENT DATE: 20150801
